FAERS Safety Report 4317606-0 (Version None)
Quarter: 2004Q1

REPORT INFORMATION
  Report Type: 
  Country: None (occurrence: None)
  Receive Date: 20040315
  Receipt Date: 20040308
  Transmission Date: 20041129
  Serious: Yes (Hospitalization)
  Sender: FDA-Public Use
  Company Number: 200410762EU

PATIENT
  Age: 59 Year
  Sex: Female
  Weight: 70 kg

DRUGS (4)
  1. DOCETAXEL [Suspect]
     Indication: NON-SMALL CELL LUNG CANCER
     Route: 042
     Dates: start: 20040124, end: 20040124
  2. FLUTICASONE PROPIONATE [Concomitant]
  3. PARACODEINE [Concomitant]
  4. OTHER RESPIRATORY SYSTEM PRODUCTS [Concomitant]

REACTIONS (2)
  - HYPERSENSITIVITY [None]
  - LEUKOCYTOCLASTIC VASCULITIS [None]
